FAERS Safety Report 7956302-5 (Version None)
Quarter: 2011Q4

REPORT INFORMATION
  Report Type: 
  Country: None (occurrence: None)
  Receive Date: 20111125
  Receipt Date: 20111115
  Transmission Date: 20120403
  Serious: Yes (Other)
  Sender: FDA-Public Use
  Company Number: 2011030327

PATIENT
  Sex: Female
  Weight: 63.9572 kg

DRUGS (3)
  1. ACTONEL [Concomitant]
  2. PRIVIGEN [Suspect]
     Indication: CHRONIC INFLAMMATORY DEMYELINATING POLYRADICULONEUROPATHY
     Dosage: (15 GM OR 25 GM; 30 ML/HR-150 ML/HR FOR 2 HRS DURATION (10% CONCENTRATION) (SUBCUTANEOUS)
     Route: 058
     Dates: start: 20110601, end: 20110707
  3. LEVOTHYROXINE SODIUM [Concomitant]

REACTIONS (3)
  - NEUTROPENIA [None]
  - FULL BLOOD COUNT ABNORMAL [None]
  - WHITE BLOOD CELL COUNT DECREASED [None]
